FAERS Safety Report 9258354 (Version 2)
Quarter: 2014Q1

REPORT INFORMATION
  Report Type: Spontaneous
  Country: US (occurrence: None)
  Receive Date: 20121212
  Receipt Date: 20130314
  Transmission Date: 20141002
  Serious: No
  Sender: FDA-Public Use
  Company Number: 1210USA010875

PATIENT
  Age: 58 Year
  Sex: Male

DRUGS (5)
  1. VICTRELIS [Suspect]
     Indication: HEPATITIS C
     Route: 048
     Dates: start: 20120814
  2. PEGASYS [Suspect]
     Indication: HEPATITIS C
     Dates: start: 20120717
  3. RIBASPHERE [Suspect]
     Indication: HEPATITIS C
     Dates: start: 20120717
  4. GLIMEPIRIDE (GLIMEPIRIDE) [Concomitant]
  5. METFORMIN (METFORMIN) [Concomitant]

REACTIONS (18)
  - Increased upper airway secretion [None]
  - Eructation [None]
  - Regurgitation [None]
  - Oral pain [None]
  - Aphthous stomatitis [None]
  - Herpes virus infection [None]
  - Headache [None]
  - Ear pain [None]
  - Myalgia [None]
  - Photophobia [None]
  - Dyspepsia [None]
  - Appetite disorder [None]
  - Product quality issue [None]
  - Abdominal pain upper [None]
  - Dysgeusia [None]
  - Arthralgia [None]
  - Dizziness [None]
  - Diarrhoea [None]
